FAERS Safety Report 19586805 (Version 1)
Quarter: 2021Q3

REPORT INFORMATION
  Report Type: Spontaneous
  Country: None (occurrence: US)
  Receive Date: 20210720
  Receipt Date: 20210720
  Transmission Date: 20211014
  Serious: Yes (Other)
  Sender: FDA-Public Use
  Company Number: US-HYGENIC CORPORATION-2114069

PATIENT
  Sex: Female

DRUGS (2)
  1. BIOFREEZE [Suspect]
     Active Substance: MENTHOL
     Indication: PAIN
     Route: 061
  2. BIOFREEZE [Suspect]
     Active Substance: MENTHOL
     Indication: MYALGIA
     Route: 061

REACTIONS (1)
  - Chemical burn [Unknown]
